FAERS Safety Report 4960248-4 (Version None)
Quarter: 2006Q1

REPORT INFORMATION
  Report Type: 
  Country: None (occurrence: None)
  Receive Date: 20060328
  Receipt Date: 20060320
  Transmission Date: 20060701
  Serious: Yes (Other)
  Sender: FDA-Public Use
  Company Number: 2006039533

PATIENT
  Sex: Female
  Weight: 72.5755 kg

DRUGS (3)
  1. CELEBREX [Suspect]
     Indication: ARTHRALGIA
  2. CALCIUM (CALCIUM) [Concomitant]
  3. CITRACAL (CALCIUM CITRATE) [Concomitant]

REACTIONS (4)
  - ABDOMINAL PAIN UPPER [None]
  - FIBROMYALGIA [None]
  - OSTEOARTHRITIS [None]
  - SYSTEMIC LUPUS ERYTHEMATOSUS [None]
